FAERS Safety Report 17650909 (Version 1)
Quarter: 2020Q2

REPORT INFORMATION
  Report Type: Spontaneous
  Country: JP (occurrence: JP)
  Receive Date: 20200409
  Receipt Date: 20200409
  Transmission Date: 20200713
  Serious: Yes (Other)
  Sender: FDA-Public Use
  Company Number: JP-PFIZER INC-2020065197

PATIENT
  Age: 3 Year
  Sex: Male
  Weight: 11 kg

DRUGS (3)
  1. VFEND [Suspect]
     Active Substance: VORICONAZOLE
     Indication: FUNGAL INFECTION
     Dosage: 90 MG, 2X/DAY
     Route: 042
     Dates: start: 20200125, end: 20200131
  2. MEROPENEM. [Suspect]
     Active Substance: MEROPENEM
     Dosage: UNK
  3. TEICOPLANIN [Suspect]
     Active Substance: TEICOPLANIN
     Dosage: UNK

REACTIONS (5)
  - Drug level increased [Recovered/Resolved]
  - Liver function test abnormal [Unknown]
  - Restlessness [Recovered/Resolved]
  - Insomnia [Recovered/Resolved]
  - Hallucination, visual [Recovered/Resolved]

NARRATIVE: CASE EVENT DATE: 20200127
